FAERS Safety Report 5297047-2 (Version None)
Quarter: 2007Q1

REPORT INFORMATION
  Report Type: 
  Country: None (occurrence: None)
  Receive Date: 20070201
  Receipt Date: 20061003
  Transmission Date: 20070707
  Serious: No
  Sender: FDA-Public Use
  Company Number: 2006PV022460

PATIENT
  Age: 66 Year
  Sex: Male
  Weight: 244.5 kg

DRUGS (15)
  1. BYETTA [Suspect]
     Indication: DIABETES MELLITUS NON-INSULIN-DEPENDENT
     Dosage: 5 MCG; BID; SC
     Route: 058
     Dates: start: 20060831, end: 20060929
  2. SYMLIN [Concomitant]
  3. LANTUS [Concomitant]
  4. NOVOLOG [Concomitant]
  5. PLAVIX [Concomitant]
  6. TOPROL-XL [Concomitant]
  7. LANOXIN [Concomitant]
  8. DETROL [Concomitant]
  9. DIOVAN [Concomitant]
  10. PROTOCHOL [Concomitant]
  11. POTASSIUM ACETATE [Concomitant]
  12. SPIRONOLACTONE [Concomitant]
  13. FUROSEMIDE [Concomitant]
  14. STOOL SOFTNER [Concomitant]
  15. SYMLIN [Concomitant]

REACTIONS (4)
  - BLOOD GLUCOSE INCREASED [None]
  - CONSTIPATION [None]
  - DECREASED APPETITE [None]
  - WEIGHT DECREASED [None]
